FAERS Safety Report 6946477-9 (Version None)
Quarter: 2010Q3

REPORT INFORMATION
  Report Type: 
  Country: None (occurrence: None)
  Receive Date: 20100824
  Receipt Date: 20100809
  Transmission Date: 20110219
  Serious: Yes (Death)
  Sender: FDA-Public Use
  Company Number: AE 2010-187

PATIENT
  Sex: Female
  Weight: 78.0187 kg

DRUGS (2)
  1. FAZACLO ODT [Suspect]
     Indication: SCHIZOAFFECTIVE DISORDER
     Dosage: 300 MG DAILY PO
     Route: 048
     Dates: start: 20090416
  2. CRESTOR [Concomitant]

REACTIONS (1)
  - NEOPLASM MALIGNANT [None]
